FAERS Safety Report 4941030-0 (Version None)
Quarter: 2006Q1

REPORT INFORMATION
  Report Type: 
  Country: None (occurrence: None)
  Receive Date: 20060313
  Receipt Date: 20060303
  Transmission Date: 20060701
  Serious: Yes (Hospitalization, Other)
  Sender: FDA-Public Use
  Company Number: 2006AC00396

PATIENT
  Age: 46 Year
  Sex: Male

DRUGS (12)
  1. ATENOLOL [Suspect]
     Dosage: STARTED OVER 1 YEAR BEFORE EVENT
     Dates: end: 20041029
  2. LISINOPRIL [Interacting]
     Dates: start: 20040810, end: 20041026
  3. LITHIUM [Interacting]
     Indication: HYPOMANIA
     Dates: start: 20040209, end: 20040418
  4. LITHIUM [Interacting]
     Dates: start: 20040419, end: 20040809
  5. LITHIUM [Interacting]
     Dates: start: 20040810, end: 20041026
  6. FOSINOPRIL SODIUM [Concomitant]
     Dosage: STARTED OVER A YEAR BEFORE EVENT
  7. HALOPERIDOL [Concomitant]
     Dosage: STARTED OVER A YEAR BEFORE EVENT
  8. BENZOTROPINE [Concomitant]
     Dosage: STARTED OVER A YEAR BEFORE EVENT
  9. OLANZAPINE [Concomitant]
     Dosage: STARTED OVER A YEAR BEFORE EVENT
  10. CLONAZEPAM [Concomitant]
     Dosage: STARTED OVER A YEAR BEFORE EVENT
  11. DIVALPROEX SODIUM [Concomitant]
     Dosage: STARTED OVER A YEAR BEFORE EVENT
  12. SIMVASTATIN [Concomitant]
     Dosage: STARTED OVER A YEAR BEFORE EVENT

REACTIONS (6)
  - BRADYCARDIA [None]
  - DRUG INTERACTION [None]
  - SALIVARY HYPERSECRETION [None]
  - THERAPEUTIC AGENT TOXICITY [None]
  - TREATMENT NONCOMPLIANCE [None]
  - TREMOR [None]
